FAERS Safety Report 5190301-4 (Version None)
Quarter: 2006Q4

REPORT INFORMATION
  Report Type: 
  Country: None (occurrence: None)
  Receive Date: 20061222
  Receipt Date: 20060928
  Transmission Date: 20070319
  Serious: Yes (Hospitalization)
  Sender: FDA-Public Use
  Company Number: FRWYE069328SEP06

PATIENT
  Sex: Male
  Weight: 80 kg

DRUGS (14)
  1. ENBREL [Suspect]
     Indication: RHEUMATOID ARTHRITIS
     Route: 058
     Dates: start: 20060401, end: 20060830
  2. CORTANCYL [Suspect]
     Indication: RHEUMATOID ARTHRITIS
     Route: 048
     Dates: end: 20060830
  3. CORTANCYL [Suspect]
     Route: 048
     Dates: start: 20060101
  4. METHOTREXATE [Suspect]
     Indication: RHEUMATOID ARTHRITIS
     Route: 048
     Dates: start: 20000101, end: 20060830
  5. GLIMEPIRIDE [Concomitant]
     Route: 048
  6. SPECIAFOLDINE [Concomitant]
     Dosage: UNKNOWN
     Route: 065
  7. ASPIRIN [Concomitant]
     Route: 048
  8. TADENAN [Concomitant]
     Dosage: UNKNOWN
     Route: 065
     Dates: end: 20060101
  9. TRIATEC [Concomitant]
     Dosage: 2.5 MG TOTAL DAILY
     Route: 048
     Dates: end: 20060101
  10. ACEBUTOLOL [Concomitant]
     Dosage: UNKNOWN
     Route: 065
  11. DI-GESIC [Concomitant]
     Dosage: UNKNOWN
     Route: 065
  12. ACARBOSE [Concomitant]
     Dosage: UNKNOWN
     Route: 065
     Dates: end: 20060101
  13. ALLOPURINOL [Concomitant]
     Dosage: UNKNOWN
     Route: 065
  14. ZOCOR [Concomitant]
     Dosage: 20 MG TOTAL DAILY
     Route: 048
     Dates: end: 20060101

REACTIONS (5)
  - DIABETES MELLITUS INADEQUATE CONTROL [None]
  - ENTEROCOCCAL SEPSIS [None]
  - INTERVERTEBRAL DISCITIS [None]
  - OBSTRUCTIVE UROPATHY [None]
  - RENAL FAILURE ACUTE [None]
